FAERS Safety Report 8103397-4 (Version None)
Quarter: 2012Q1

REPORT INFORMATION
  Report Type: 
  Country: None (occurrence: None)
  Receive Date: 20120127
  Receipt Date: 20120120
  Transmission Date: 20120608
  Serious: Yes (Death)
  Sender: FDA-Public Use
  Company Number: ADR-2011-11421

PATIENT
  Age: 73 Year
  Sex: Male

DRUGS (5)
  1. FENTANYL CITRATE [Concomitant]
  2. BACLOFEN [Suspect]
     Indication: BACK PAIN
     Dosage: 91.8 MCG DAILY,INTRATH.
     Route: 037
  3. BACLOFEN [Suspect]
     Indication: PAIN
     Dosage: 91.8 MCG DAILY,INTRATH.
     Route: 037
  4. DILAUDID [Concomitant]
  5. DROPERIDOL [Concomitant]

REACTIONS (1)
  - DEATH [None]
